FAERS Safety Report 6732560-X (Version None)
Quarter: 2010Q2

REPORT INFORMATION
  Report Type: 
  Country: None (occurrence: None)
  Receive Date: 20100519
  Receipt Date: 20100512
  Transmission Date: 20101027
  Serious: Yes (Death)
  Sender: FDA-Public Use
  Company Number: JP-BRISTOL-MYERS SQUIBB COMPANY-15071822

PATIENT
  Age: 73 Year
  Sex: Female
  Weight: 35 kg

DRUGS (3)
  1. ERBITUX [Suspect]
     Indication: RECTAL CANCER
     Dosage: RECENT INF: 16APR2010
     Route: 042
     Dates: start: 20100416, end: 20100416
  2. POLARAMINE [Concomitant]
     Indication: PREMEDICATION
     Route: 042
     Dates: start: 20100416, end: 20100416
  3. DECADRON [Concomitant]
     Indication: PREMEDICATION
     Route: 042
     Dates: start: 20100416, end: 20100416

REACTIONS (1)
  - GASTROINTESTINAL PERFORATION [None]
